FAERS Safety Report 21327382 (Version 1)
Quarter: 2022Q3

REPORT INFORMATION
  Report Type: Spontaneous
  Country: US (occurrence: None)
  Receive Date: 20220912
  Receipt Date: 20220912
  Transmission Date: 20221026
  Serious: No
  Sender: FDA-Public Use
  Company Number: None

PATIENT
  Age: 37 Year
  Sex: Female

DRUGS (1)
  1. QBREXZA [Suspect]
     Active Substance: GLYCOPYRRONIUM TOSYLATE
     Indication: Hyperhidrosis
     Dosage: OTHER QUANTITY : USING 1 WIPE BOTH ;?OTHER FREQUENCY : NIGHTLY BEDTIME;?OTHER ROUTE : APPLY TO BOTH
     Route: 061
     Dates: start: 202201

REACTIONS (1)
  - Surgery [None]
